FAERS Safety Report 26073447 (Version 1)
Quarter: 2025Q4

REPORT INFORMATION
  Report Type: Spontaneous
  Country: EU (occurrence: EU)
  Receive Date: 20251121
  Receipt Date: 20251121
  Transmission Date: 20260118
  Serious: No
  Sender: ALKEM
  Company Number: EU-ALKEM LABORATORIES LIMITED-BE-ALKEM-2025-05590

PATIENT
  Age: 5 Decade
  Sex: Male

DRUGS (9)
  1. MINOCYCLINE [Suspect]
     Active Substance: MINOCYCLINE HYDROCHLORIDE
     Indication: Urethritis mycoplasmal
     Dosage: UNK, BID (7 DAYS COURSES)
     Route: 065
  2. MINOCYCLINE [Suspect]
     Active Substance: MINOCYCLINE HYDROCHLORIDE
     Dosage: UNK
     Route: 065
  3. AZITHROMYCIN [Suspect]
     Active Substance: AZITHROMYCIN
     Indication: Urethritis mycoplasmal
     Dosage: UNK, BID (4 DAYS COURSES)
     Route: 065
  4. LEVOFLOXACIN [Suspect]
     Active Substance: LEVOFLOXACIN
     Indication: Urethritis mycoplasmal
     Dosage: UNK, QD  (7 DAYS COURSES)
     Route: 065
  5. MOXIFLOXACIN [Suspect]
     Active Substance: MOXIFLOXACIN
     Indication: Urethritis mycoplasmal
     Dosage: UNK, BID (7 DAYS COURSES)
     Route: 065
  6. DOXYCYCLINE [Suspect]
     Active Substance: DOXYCYCLINE
     Indication: Urethritis mycoplasmal
     Dosage: UNK, BID (7 DAYS COURSES)
     Route: 065
  7. METHENAMINE [Suspect]
     Active Substance: METHENAMINE
     Indication: Urethritis mycoplasmal
     Dosage: UNK
     Route: 065
  8. METRONIDAZOLE [Suspect]
     Active Substance: METRONIDAZOLE
     Indication: Urethritis mycoplasmal
     Dosage: UNK
     Route: 065
  9. PRISTINAMYCIN [Suspect]
     Active Substance: PRISTINAMYCIN
     Indication: Urethritis mycoplasmal
     Dosage: UNK
     Route: 065

REACTIONS (2)
  - Dyspepsia [Unknown]
  - Treatment failure [Unknown]
